FAERS Safety Report 11606960 (Version 2)
Quarter: 2015Q4

REPORT INFORMATION
  Report Type: Spontaneous
  Country: ES (occurrence: ES)
  Receive Date: 20151007
  Receipt Date: 20151014
  Transmission Date: 20160304
  Serious: Yes (Other)
  Sender: FDA-Public Use
  Company Number: ES-ASTRAZENECA-2015SE23039

PATIENT
  Age: 47 Year
  Sex: Female

DRUGS (23)
  1. ABILIFY [Suspect]
     Active Substance: ARIPIPRAZOLE
     Indication: DEPRESSION
     Route: 065
  2. DEPAKINE [Suspect]
     Active Substance: VALPROATE SODIUM
     Indication: DEPRESSION
     Route: 065
  3. ORFIDAL [Suspect]
     Active Substance: LORAZEPAM
     Indication: DEPRESSION
     Route: 065
  4. SOLIAN [Suspect]
     Active Substance: AMISULPRIDE
     Indication: DEPRESSION
     Route: 065
  5. SEROQUEL [Suspect]
     Active Substance: QUETIAPINE FUMARATE
     Indication: DEPRESSION
     Route: 048
  6. VANDRAL [Suspect]
     Active Substance: VENLAFAXINE HYDROCHLORIDE
     Indication: DEPRESSION
     Route: 048
  7. TRILEPTAL [Suspect]
     Active Substance: OXCARBAZEPINE
     Indication: DEPRESSION
     Route: 065
  8. CYMBALTA [Suspect]
     Active Substance: DULOXETINE HYDROCHLORIDE
     Indication: DEPRESSION
     Route: 065
  9. SEROQUEL [Suspect]
     Active Substance: QUETIAPINE FUMARATE
     Indication: DEPRESSION
     Dosage: ROCOZ, 100 MG
     Route: 048
  10. ABILIFY [Suspect]
     Active Substance: ARIPIPRAZOLE
     Indication: DEPRESSION
     Dosage: ARIPIPRAZOLE
     Route: 065
  11. VANDRAL [Suspect]
     Active Substance: VENLAFAXINE HYDROCHLORIDE
     Indication: DEPRESSION
     Dosage: ZARELIS, 75 MG
     Route: 065
  12. TRYPTIZOL [Suspect]
     Active Substance: AMITRIPTYLINE HYDROCHLORIDE
     Indication: DEPRESSION
     Route: 065
  13. RISPERDAL [Suspect]
     Active Substance: RISPERIDONE
     Indication: DEPRESSION
     Route: 065
  14. ANAFRANIL [Suspect]
     Active Substance: CLOMIPRAMINE HYDROCHLORIDE
     Indication: DEPRESSION
     Route: 065
  15. SEROQUEL [Suspect]
     Active Substance: QUETIAPINE FUMARATE
     Indication: DEPRESSION
     Route: 048
  16. VANDRAL [Suspect]
     Active Substance: VENLAFAXINE HYDROCHLORIDE
     Indication: DEPRESSION
     Route: 048
  17. LUDIOMIL [Suspect]
     Active Substance: MAPROTILINE HYDROCHLORIDE
     Indication: DEPRESSION
     Route: 065
  18. ZYPREXA [Suspect]
     Active Substance: OLANZAPINE
     Indication: DEPRESSION
     Route: 065
  19. PALIPERIDONE PALMITATE [Suspect]
     Active Substance: PALIPERIDONE PALMITATE
     Indication: DEPRESSION
     Route: 065
  20. DEPRAX [Suspect]
     Active Substance: TRAZODONE HYDROCHLORIDE
     Indication: DEPRESSION
     Route: 065
  21. GABAPENTIN. [Suspect]
     Active Substance: GABAPENTIN
     Indication: DEPRESSION
     Route: 065
  22. ANAFRANIL [Suspect]
     Active Substance: CLOMIPRAMINE HYDROCHLORIDE
     Indication: DEPRESSION
     Route: 065
  23. SINOGAN [Suspect]
     Active Substance: LEVOMEPROMAZINE
     Indication: DEPRESSION
     Route: 065

REACTIONS (11)
  - Conjunctivitis [Unknown]
  - Mental disorder [Unknown]
  - Psoriasis [Unknown]
  - Eye irritation [Unknown]
  - Constipation [Unknown]
  - Dry eye [Unknown]
  - Product use issue [Unknown]
  - Visual impairment [Unknown]
  - Off label use [Unknown]
  - Intestinal obstruction [Unknown]
  - Vision blurred [Unknown]
